FAERS Safety Report 10572815 (Version 4)
Quarter: 2015Q1

REPORT INFORMATION
  Report Type: Spontaneous
  Country: GB (occurrence: None)
  Receive Date: 20141106
  Receipt Date: 20150226
  Transmission Date: 20150720
  Serious: Yes (Hospitalization)
  Sender: FDA-Public Use
  Company Number: 2606063

PATIENT
  Age: 67 Year
  Sex: Female
  Weight: 70 kg

DRUGS (4)
  1. PACLITAXEL ALBUMIN [Suspect]
     Active Substance: PACLITAXEL
     Indication: OVARIAN CANCER
     Dosage: 175 MG/M 2 MILLIGRAM(S)/SQ. METER (1 WEEK), INTRAVENOUS DRIP?
     Route: 041
     Dates: start: 20140530
  2. CARBOPLATIN. [Suspect]
     Active Substance: CARBOPLATIN
     Indication: OVARIAN CANCER
     Dosage: UNKNOWN, 1 WEEK, INTRAVENOUS DRIP
     Route: 041
     Dates: start: 20140530
  3. CARBOPLATIN. [Suspect]
     Active Substance: CARBOPLATIN
     Dosage: UNKNOWN, 1 WEEK, INTRAVENOUS DRIP
     Route: 041
     Dates: start: 20140530
  4. INVESTIGATIONAL DRUG [Concomitant]
     Active Substance: INVESTIGATIONAL PRODUCT

REACTIONS (7)
  - Drug eruption [None]
  - Rash maculo-papular [None]
  - Mucosal infection [None]
  - Lip swelling [None]
  - Lip pain [None]
  - Pyrexia [None]
  - Neutrophil count decreased [None]

NARRATIVE: CASE EVENT DATE: 20140611
